FAERS Safety Report 21538270 (Version 1)
Quarter: 2022Q4

REPORT INFORMATION
  Report Type: Report from Study
  Country: US (occurrence: US)
  Receive Date: 20221102
  Receipt Date: 20221102
  Transmission Date: 20230113
  Serious: No
  Sender: FDA-Public Use
  Company Number: US-ABBVIE-4156742

PATIENT
  Age: 18 Year

DRUGS (1)
  1. SKYRIZI [Suspect]
     Active Substance: RISANKIZUMAB-RZAA
     Indication: Psoriasis
     Dosage: FREQUENCY TEXT: WEEK 0
     Route: 058
     Dates: start: 20220927

REACTIONS (3)
  - Fatigue [Unknown]
  - Psoriasis [Unknown]
  - Shift work disorder [Unknown]

NARRATIVE: CASE EVENT DATE: 20220927
